FAERS Safety Report 6108122-4 (Version None)
Quarter: 2009Q1

REPORT INFORMATION
  Report Type: 
  Country: None (occurrence: None)
  Receive Date: 20090305
  Receipt Date: 20090305
  Transmission Date: 20090719
  Serious: Yes (Hospitalization)
  Sender: FDA-Public Use
  Company Number: None

PATIENT
  Sex: Female
  Weight: 18.4 kg

DRUGS (9)
  1. CYCLOPHOSPHAMIDE [Suspect]
     Dosage: 2010 MG
     Dates: end: 20090131
  2. CYTARABINE [Suspect]
     Dosage: 72 MG
     Dates: end: 20090202
  3. DOXORUBICIN HCL [Suspect]
     Dosage: 40 MG
     Dates: end: 20090129
  4. HYDROCORTISONE [Suspect]
     Dosage: 36 MG
     Dates: end: 20090202
  5. LEUCOVORIN CALCIUM [Suspect]
     Dosage: 110 MG
     Dates: end: 20090201
  6. METHOTREXATE [Suspect]
     Dosage: 5476MG
     Dates: end: 20090202
  7. PREDNISONE [Suspect]
     Dosage: 590 MG
     Dates: end: 20090305
  8. RITUXIMAB (MOAB C2B8 ANTI CD20, CHIMERIC) [Suspect]
     Dosage: 500 MG
     Dates: end: 20090128
  9. VINCRISTINE SULFATE [Suspect]
     Dosage: 1.4 MG
     Dates: end: 20090128

REACTIONS (3)
  - CLOSTRIDIUM DIFFICILE COLITIS [None]
  - ENTEROCOLITIS HAEMORRHAGIC [None]
  - NO THERAPEUTIC RESPONSE [None]
